FAERS Safety Report 8607592-7 (Version None)
Quarter: 2012Q3

REPORT INFORMATION
  Report Type: 
  Country: None (occurrence: None)
  Receive Date: 20120821
  Receipt Date: 20120814
  Transmission Date: 20120928
  Serious: Yes (Other)
  Sender: FDA-Public Use
  Company Number: GB-JNJFOC-20120809335

PATIENT

DRUGS (5)
  1. VINBLASTINE SULFATE [Suspect]
     Indication: BLADDER CANCER
     Route: 065
  2. METHOTREXATE [Suspect]
     Indication: BLADDER CANCER
     Route: 065
  3. CISPLATIN [Suspect]
     Indication: BLADDER CANCER
     Dosage: 4 HOUR INFUSION
     Route: 042
  4. NEUPOGEN [Concomitant]
     Indication: PROPHYLAXIS
     Dosage: FOR 7 DAYS, STARTING 24 HOURS AFTER  THE LAST DOSE OF CYTOTOXIC DRUG
     Route: 065
  5. DOXORUBICIN HYDROCHLORIDE [Suspect]
     Indication: BLADDER CANCER
     Route: 042

REACTIONS (3)
  - TRANSIENT ISCHAEMIC ATTACK [None]
  - LOWER RESPIRATORY TRACT INFECTION [None]
  - OFF LABEL USE [None]
